FAERS Safety Report 5179258-X (Version None)
Quarter: 2006Q4

REPORT INFORMATION
  Report Type: 
  Country: None (occurrence: None)
  Receive Date: 20061219
  Receipt Date: 20061204
  Transmission Date: 20070319
  Serious: Yes (Other)
  Sender: FDA-Public Use
  Company Number: PHEH2006US14882

PATIENT
  Age: 76 Year
  Sex: Female

DRUGS (3)
  1. ZELNORM [Suspect]
     Indication: CONSTIPATION
     Dosage: UNK, QD
     Route: 048
     Dates: start: 20030701, end: 20030804
  2. METFORMIN [Concomitant]
     Indication: DIABETES MELLITUS
  3. NORVASC [Concomitant]
     Indication: HYPERTENSION

REACTIONS (6)
  - ASTHENIA [None]
  - CEREBROVASCULAR ACCIDENT [None]
  - HEADACHE [None]
  - HYPOAESTHESIA [None]
  - NERVOUSNESS [None]
  - PARAESTHESIA [None]
